FAERS Safety Report 8583010-2 (Version None)
Quarter: 2012Q3

REPORT INFORMATION
  Report Type: 
  Country: None (occurrence: None)
  Receive Date: 20120809
  Receipt Date: 20120807
  Transmission Date: 20120928
  Serious: Yes (Death, Hospitalization)
  Sender: FDA-Public Use
  Company Number: DE-ABBOTT-12P-062-0911088-00

PATIENT
  Sex: Female

DRUGS (2)
  1. METHOTREXATE [Concomitant]
     Indication: RHEUMATOID ARTHRITIS
     Dates: start: 19991201, end: 20100301
  2. HUMIRA [Suspect]
     Indication: RHEUMATOID ARTHRITIS
     Dates: start: 20050501, end: 20100301

REACTIONS (11)
  - CACHEXIA [None]
  - PNEUMONIA [None]
  - VIITH NERVE PARALYSIS [None]
  - PARESIS [None]
  - CARDIAC FAILURE ACUTE [None]
  - PULMONARY TUBERCULOSIS [None]
  - CHRONIC OBSTRUCTIVE PULMONARY DISEASE [None]
  - SOMNOLENCE [None]
  - BEDRIDDEN [None]
  - CARDIAC DISORDER [None]
  - DYSPNOEA [None]
